FAERS Safety Report 13541460 (Version 2)
Quarter: 2017Q3

REPORT INFORMATION
  Report Type: Spontaneous
  Country: US (occurrence: US)
  Receive Date: 20170512
  Receipt Date: 20170710
  Transmission Date: 20171127
  Serious: No
  Sender: FDA-Public Use
  Company Number: US-PFIZER INC-2017207424

PATIENT
  Age: 39 Year
  Sex: Female
  Weight: 64 kg

DRUGS (13)
  1. COQ [Concomitant]
     Indication: BACK DISORDER
     Dosage: UNK, 1X/DAY
     Route: 048
  2. ASPIRIN /00002701/ [Concomitant]
     Active Substance: ASPIRIN
     Indication: ANTICOAGULANT THERAPY
     Dosage: 81 MG, 1X/DAY
     Route: 048
  3. LYRICA [Suspect]
     Active Substance: PREGABALIN
     Indication: OSTEOPOROSIS
  4. FLUTICASONE. [Concomitant]
     Active Substance: FLUTICASONE
     Indication: HYPERSENSITIVITY
     Dosage: 50 UG, 2X/DAY
     Dates: start: 2016
  5. LYRICA [Suspect]
     Active Substance: PREGABALIN
     Indication: FIBROMYALGIA
     Dosage: 150 MG, 2X/DAY, ^ONE IN THE AM, ONE AT DINNER, WITH WATER AND YOGURT^
     Route: 048
     Dates: start: 20170323
  6. LYRICA [Suspect]
     Active Substance: PREGABALIN
     Indication: RHEUMATOID ARTHRITIS
  7. BUPROPION. [Concomitant]
     Active Substance: BUPROPION
     Indication: AFFECTIVE DISORDER
     Dosage: 150 MG, 2X/DAY
     Dates: start: 201612
  8. PREDNISONE. [Concomitant]
     Active Substance: PREDNISONE
     Indication: JOINT SWELLING
     Dosage: 20 MG, 1X/DAY, ^10 MG, TWO TABLETS EVERY MORNING WITH FOOD^
     Dates: start: 20170502
  9. ESTRADIOL. [Concomitant]
     Active Substance: ESTRADIOL
     Indication: HORMONE REPLACEMENT THERAPY
     Dosage: 0.5 MG, 1X/DAY, ^IN THE MORNING^
  10. SERTRALINE [Concomitant]
     Active Substance: SERTRALINE HYDROCHLORIDE
     Indication: AFFECTIVE DISORDER
     Dosage: 100 MG, 1X/DAY, ^WITH FOOD^
     Route: 048
     Dates: start: 201604
  11. PANTOPRAZOLE [Concomitant]
     Active Substance: PANTOPRAZOLE
     Indication: GASTROOESOPHAGEAL REFLUX DISEASE
     Dosage: 20 MG, UNK, ^30 MINUTES PRIOR TO MEAL^
     Route: 048
  12. BUPROPION. [Concomitant]
     Active Substance: BUPROPION
     Indication: SMOKING CESSATION THERAPY
  13. VITAMIN D3 [Concomitant]
     Active Substance: CHOLECALCIFEROL
     Indication: VITAMIN D DEFICIENCY
     Dosage: 5000 IU, 1X/DAY
     Route: 048

REACTIONS (2)
  - Tremor [Unknown]
  - Gait disturbance [Unknown]
